FAERS Safety Report 25463312 (Version 1)
Quarter: 2025Q2

REPORT INFORMATION
  Report Type: Report from Study
  Country: US (occurrence: US)
  Receive Date: 20250620
  Receipt Date: 20250620
  Transmission Date: 20250717
  Serious: Yes (Other)
  Sender: GILEAD
  Company Number: US-GILEAD-2025-0717995

PATIENT
  Age: 55 Year
  Sex: Female

DRUGS (1)
  1. SELADELPAR [Suspect]
     Active Substance: SELADELPAR
     Indication: Primary biliary cholangitis
     Route: 048
     Dates: start: 202304

REACTIONS (3)
  - Multiple fractures [Unknown]
  - Bone pain [Unknown]
  - Pruritus [Unknown]
